FAERS Safety Report 8831918 (Version 1)
Quarter: 2012Q4

REPORT INFORMATION
  Report Type: 
  Country: ES (occurrence: ES)
  Receive Date: 20121008
  Receipt Date: 20121008
  Transmission Date: 20130627
  Serious: Yes (Death, Other)
  Sender: FDA-Public Use
  Company Number: ES-ELI_LILLY_AND_COMPANY-ES201210001216

PATIENT
  Sex: Male

DRUGS (1)
  1. FORSTEO [Suspect]

REACTIONS (3)
  - Infection [Fatal]
  - Skin wound [Unknown]
  - Wound infection [Unknown]
